FAERS Safety Report 4368934-4 (Version None)
Quarter: 2004Q2

REPORT INFORMATION
  Report Type: 
  Country: None (occurrence: None)
  Receive Date: 20040527
  Receipt Date: 20040510
  Transmission Date: 20050107
  Serious: Yes (Hospitalization, Other)
  Sender: FDA-Public Use
  Company Number: USA031050573

PATIENT
  Age: 68 Year
  Sex: Female
  Weight: 62 kg

DRUGS (5)
  1. FORTEO [Suspect]
     Indication: FRACTURE
     Dates: start: 20031015
  2. FORTEO [Suspect]
     Indication: PROPHYLAXIS
     Dates: start: 20031015
  3. EVISTA [Suspect]
     Indication: BONE DISORDER
     Dates: start: 20030901
  4. NORVASC [Concomitant]
  5. CALCIUM WITH VITAMIN D [Concomitant]

REACTIONS (10)
  - BACK PAIN [None]
  - CARDIAC DISORDER [None]
  - DIZZINESS [None]
  - DYSPNOEA EXACERBATED [None]
  - HEART RATE IRREGULAR [None]
  - INFLUENZA LIKE ILLNESS [None]
  - MOBILITY DECREASED [None]
  - MUSCLE SPASMS [None]
  - NAUSEA [None]
  - PHARMACEUTICAL PRODUCT COMPLAINT [None]
